FAERS Safety Report 4545479-X (Version None)
Quarter: 2005Q1

REPORT INFORMATION
  Report Type: 
  Country: None (occurrence: None)
  Receive Date: 20050105
  Receipt Date: 20041027
  Transmission Date: 20050727
  Serious: No
  Sender: FDA-Public Use
  Company Number: JP-MERCK-0411USA00112B1

PATIENT
  Age: 10 Day
  Sex: Male

DRUGS (2)
  1. ALDOMET [Suspect]
     Indication: HYPERTENSION
  2. ALDOMET [Suspect]

REACTIONS (8)
  - BRAIN STEM AUDITORY EVOKED RESPONSE [None]
  - CAESAREAN SECTION [None]
  - CONGENITAL CYTOMEGALOVIRUS INFECTION [None]
  - DEAFNESS NEUROSENSORY [None]
  - DRUG EXPOSURE DURING PREGNANCY [None]
  - PAROTITIS [None]
  - RASH [None]
  - STAPHYLOCOCCAL INFECTION [None]
